FAERS Safety Report 25112420 (Version 1)
Quarter: 2025Q1

REPORT INFORMATION
  Report Type: Spontaneous
  Country: US (occurrence: US)
  Receive Date: 20250324
  Receipt Date: 20250324
  Transmission Date: 20250409
  Serious: No
  Sender: UCB
  Company Number: US-UCBSA-2024066577

PATIENT
  Age: 12 Year
  Sex: Male

DRUGS (2)
  1. BRIVIACT [Suspect]
     Active Substance: BRIVARACETAM
     Indication: Myoclonus
  2. BRIVIACT [Suspect]
     Active Substance: BRIVARACETAM
     Indication: Off label use

REACTIONS (2)
  - Off label use [Unknown]
  - Product availability issue [Unknown]
